FAERS Safety Report 18572056 (Version 1)
Quarter: 2020Q4

REPORT INFORMATION
  Report Type: Spontaneous
  Country: BR (occurrence: BR)
  Receive Date: 20201202
  Receipt Date: 20201202
  Transmission Date: 20210114
  Serious: Yes (Other)
  Sender: FDA-Public Use
  Company Number: NVSC2020BR317415

PATIENT
  Age: 83 Year
  Sex: Female

DRUGS (2)
  1. TRAMETINIB [Suspect]
     Active Substance: TRAMETINIB
     Indication: DISEASE PROGRESSION
     Dosage: 2 MG, QD
     Route: 048
     Dates: start: 202003
  2. HYDROXYCHLOROQUINE [Suspect]
     Active Substance: HYDROXYCHLOROQUINE
     Indication: LUNG ADENOCARCINOMA
     Dosage: 400 MG, QD
     Route: 065
     Dates: start: 202003

REACTIONS (3)
  - Skin toxicity [Unknown]
  - Disease progression [Unknown]
  - Product use in unapproved indication [Unknown]

NARRATIVE: CASE EVENT DATE: 202005
